FAERS Safety Report 24907567 (Version 1)
Quarter: 2025Q1

REPORT INFORMATION
  Report Type: Spontaneous
  Country: SK (occurrence: SK)
  Receive Date: 20250131
  Receipt Date: 20250131
  Transmission Date: 20250408
  Serious: Yes (Other)
  Sender: AMGEN
  Company Number: SK-SANDOZ-SDZ2025SK003134

PATIENT
  Age: 50 Year
  Sex: Female

DRUGS (3)
  1. DENOSUMAB [Suspect]
     Active Substance: DENOSUMAB
     Indication: Breast neoplasm
     Route: 065
     Dates: start: 202011
  2. LETROZOLE [Suspect]
     Active Substance: LETROZOLE
     Indication: Breast neoplasm
     Route: 065
     Dates: start: 202011
  3. KISQALI [Suspect]
     Active Substance: RIBOCICLIB
     Indication: Breast neoplasm
     Dosage: 600 MG, QD, FOR 21 CONSECUTIVE DAYS,
     Route: 065
     Dates: start: 202012

REACTIONS (2)
  - Neutropenia [Unknown]
  - Fatigue [Unknown]
